FAERS Safety Report 6361628-5 (Version None)
Quarter: 2009Q3

REPORT INFORMATION
  Report Type: 
  Country: None (occurrence: None)
  Receive Date: 20090915
  Receipt Date: 20090915
  Transmission Date: 20100115
  Serious: Yes (Other)
  Sender: FDA-Public Use
  Company Number: None

PATIENT
  Age: 70 Year
  Sex: Female
  Weight: 73.9363 kg

DRUGS (7)
  1. SEROQUEL [Suspect]
     Indication: SLEEP DISORDER
     Dosage: 200 MG 1 NIGHTLY UNK
     Dates: start: 20040712, end: 20090512
  2. LISINOPRIL [Concomitant]
  3. PRAVASTATIN [Concomitant]
  4. LAMICTAL [Concomitant]
  5. DILTIAZEM [Concomitant]
  6. LEVOTHYROXINE SODIUM [Concomitant]
  7. OMEPRAZOLE [Concomitant]

REACTIONS (10)
  - ABDOMINAL DISCOMFORT [None]
  - ACTIVITIES OF DAILY LIVING IMPAIRED [None]
  - FATIGUE [None]
  - GASTRITIS [None]
  - GASTROOESOPHAGEAL REFLUX DISEASE [None]
  - HIATUS HERNIA [None]
  - HYPOTHYROIDISM [None]
  - INJURY [None]
  - NO THERAPEUTIC RESPONSE [None]
  - PRODUCTIVE COUGH [None]
